FAERS Safety Report 18141192 (Version 3)
Quarter: 2023Q2

REPORT INFORMATION
  Report Type: Spontaneous
  Country: US (occurrence: US)
  Receive Date: 20200812
  Receipt Date: 20230427
  Transmission Date: 20230722
  Serious: Yes (Other)
  Sender: FDA-Public Use
  Company Number: US-GILEAD-2020-0489338

PATIENT
  Age: 63 Year
  Sex: Male
  Weight: 76.19 kg

DRUGS (75)
  1. ATRIPLA [Suspect]
     Active Substance: EFAVIRENZ\EMTRICITABINE\TENOFOVIR DISOPROXIL FUMARATE
     Indication: HIV infection
     Dosage: UNK
     Route: 048
     Dates: start: 2008
  2. ATRIPLA [Suspect]
     Active Substance: EFAVIRENZ\EMTRICITABINE\TENOFOVIR DISOPROXIL FUMARATE
     Dosage: UNK
     Route: 048
     Dates: start: 200805, end: 201109
  3. VIREAD [Suspect]
     Active Substance: TENOFOVIR DISOPROXIL FUMARATE
     Indication: HIV infection
     Dosage: UNK
     Route: 048
     Dates: start: 2008, end: 20160613
  4. VIREAD [Suspect]
     Active Substance: TENOFOVIR DISOPROXIL FUMARATE
     Dosage: UNK
     Route: 048
     Dates: start: 201312, end: 20160613
  5. TRUVADA [Suspect]
     Active Substance: EMTRICITABINE\TENOFOVIR DISOPROXIL FUMARATE
     Indication: HIV infection
     Dosage: UNK
     Route: 048
     Dates: start: 20080314, end: 20080509
  6. TRUVADA [Suspect]
     Active Substance: EMTRICITABINE\TENOFOVIR DISOPROXIL FUMARATE
     Dosage: UNK
     Route: 048
     Dates: start: 20080314, end: 201206
  7. COMPLERA [Suspect]
     Active Substance: EMTRICITABINE\RILPIVIRINE HYDROCHLORIDE\TENOFOVIR DISOPROXIL FUMARATE
     Indication: HIV infection
     Dosage: UNK
     Route: 048
     Dates: start: 2008
  8. COMPLERA [Suspect]
     Active Substance: EMTRICITABINE\RILPIVIRINE HYDROCHLORIDE\TENOFOVIR DISOPROXIL FUMARATE
     Dosage: UNK
     Route: 048
     Dates: start: 201112, end: 201312
  9. EMTRIVA [Concomitant]
     Active Substance: EMTRICITABINE
  10. DESCOVY [Concomitant]
     Active Substance: EMTRICITABINE\TENOFOVIR ALAFENAMIDE FUMARATE
  11. FUROSEMIDE [Concomitant]
     Active Substance: FUROSEMIDE
  12. CRIXIVAN [Concomitant]
     Active Substance: INDINAVIR SULFATE
  13. EDURANT [Concomitant]
     Active Substance: RILPIVIRINE HYDROCHLORIDE
  14. EPIVIR [Concomitant]
     Active Substance: LAMIVUDINE
  15. EPZICOM [Concomitant]
     Active Substance: ABACAVIR SULFATE\LAMIVUDINE
  16. KALETRA [Concomitant]
     Active Substance: LOPINAVIR\RITONAVIR
  17. SUSTIVA [Concomitant]
     Active Substance: EFAVIRENZ
  18. TIVICAY [Concomitant]
     Active Substance: DOLUTEGRAVIR SODIUM
  19. VIRAMUNE [Concomitant]
     Active Substance: NEVIRAPINE
  20. ACETAMINOPHEN [Concomitant]
     Active Substance: ACETAMINOPHEN
  21. ACETAMINOPHEN\HYDROCODONE [Concomitant]
     Active Substance: ACETAMINOPHEN\HYDROCODONE
  22. ACTOS [Concomitant]
     Active Substance: PIOGLITAZONE HYDROCHLORIDE
  23. ALBUTEROL SULFATE [Concomitant]
     Active Substance: ALBUTEROL SULFATE
  24. ALTEPLASE [Concomitant]
     Active Substance: ALTEPLASE
  25. AMLODIPINE [Concomitant]
     Active Substance: AMLODIPINE BESYLATE
  26. ASPIRIN [Concomitant]
     Active Substance: ASPIRIN
  27. ATORVASTATIN [Concomitant]
     Active Substance: ATORVASTATIN
  28. AMOXICILLIN\CLAVULANIC ACID [Concomitant]
     Active Substance: AMOXICILLIN\CLAVULANIC ACID
  29. CEFEPIME [Concomitant]
     Active Substance: CEFEPIME HYDROCHLORIDE
  30. CHANTIX [Concomitant]
     Active Substance: VARENICLINE TARTRATE
  31. CIPRO [Concomitant]
     Active Substance: CIPROFLOXACIN HYDROCHLORIDE
  32. CLINDAMYCIN [Concomitant]
     Active Substance: CLINDAMYCIN
  33. CLOPIDOGREL [Concomitant]
     Active Substance: CLOPIDOGREL BISULFATE
  34. DAPSONE [Concomitant]
     Active Substance: DAPSONE
  35. DIFLUCAN [Concomitant]
     Active Substance: FLUCONAZOLE
  36. DOCUSATE\SENNOSIDES [Concomitant]
     Active Substance: DOCUSATE\SENNOSIDES
  37. DOLUTEGRAVIR [Concomitant]
     Active Substance: DOLUTEGRAVIR
  38. DOXYCYCLINE [Concomitant]
     Active Substance: DOXYCYCLINE
  39. DULCOLAX STOOL SOFTENER [Concomitant]
     Active Substance: DOCUSATE SODIUM
  40. FEXOFENADINE HYDROCHLORIDE [Concomitant]
     Active Substance: FEXOFENADINE HYDROCHLORIDE
  41. HARVONI [Concomitant]
     Active Substance: LEDIPASVIR\SOFOSBUVIR
  42. HYDROCODONE BITARTRATE AND ACETAMINOPHEN [Concomitant]
     Active Substance: ACETAMINOPHEN\HYDROCODONE BITARTRATE
  43. GLIPIZIDE [Concomitant]
     Active Substance: GLIPIZIDE
  44. GABAPENTIN [Concomitant]
     Active Substance: GABAPENTIN
  45. ISENTRESS [Concomitant]
     Active Substance: RALTEGRAVIR POTASSIUM
  46. ISOSORBIDE MONONITRATE [Concomitant]
     Active Substance: ISOSORBIDE MONONITRATE
  47. ITRACONAZOLE [Concomitant]
     Active Substance: ITRACONAZOLE
  48. SITAGLIPTIN PHOSPHATE [Concomitant]
     Active Substance: SITAGLIPTIN PHOSPHATE
  49. LAMIVUDINE [Concomitant]
     Active Substance: LAMIVUDINE
  50. LANTUS [Concomitant]
     Active Substance: INSULIN GLARGINE
  51. LEVEMIR [Concomitant]
     Active Substance: INSULIN DETEMIR
  52. LISINOPRIL [Concomitant]
     Active Substance: LISINOPRIL
  53. LEVITRA [Concomitant]
     Active Substance: VARDENAFIL HYDROCHLORIDE
  54. LORATADINE [Concomitant]
     Active Substance: LORATADINE
  55. METOPROLOL [Concomitant]
     Active Substance: METOPROLOL
  56. MIRALAX [Concomitant]
     Active Substance: POLYETHYLENE GLYCOL 3350
  57. NITROGLYCERIN [Concomitant]
     Active Substance: NITROGLYCERIN
  58. NORCO [Concomitant]
     Active Substance: ACETAMINOPHEN\HYDROCODONE BITARTRATE
  59. NORVASC [Concomitant]
     Active Substance: AMLODIPINE BESYLATE
  60. NOVOLOG [Concomitant]
     Active Substance: INSULIN ASPART
  61. ONDANSETRON [Concomitant]
     Active Substance: ONDANSETRON
  62. PROAIR HFA [Concomitant]
     Active Substance: ALBUTEROL SULFATE
  63. PROMETHAZINE [Concomitant]
     Active Substance: PROMETHAZINE HYDROCHLORIDE
  64. RILPIVIRINE [Concomitant]
     Active Substance: RILPIVIRINE
  65. TERBINAFINE [Concomitant]
     Active Substance: TERBINAFINE
  66. TESSALON [Concomitant]
     Active Substance: BENZONATATE
  67. TIZANIDINE [Concomitant]
     Active Substance: TIZANIDINE
  68. TRAMADOL [Concomitant]
     Active Substance: TRAMADOL
  69. VALTREX [Concomitant]
     Active Substance: VALACYCLOVIR HYDROCHLORIDE
  70. VANCOMYCIN [Concomitant]
     Active Substance: VANCOMYCIN
  71. VARENICLINE TARTRATE [Concomitant]
     Active Substance: VARENICLINE TARTRATE
  72. VENTOLIN HFA [Concomitant]
     Active Substance: ALBUTEROL SULFATE
  73. SILDENAFIL [Concomitant]
     Active Substance: SILDENAFIL
  74. VITAMIN D3 [Concomitant]
     Active Substance: CHOLECALCIFEROL
  75. ZESTORETIC [Concomitant]
     Active Substance: HYDROCHLOROTHIAZIDE\LISINOPRIL

REACTIONS (8)
  - Chronic kidney disease [Not Recovered/Not Resolved]
  - Pain [Not Recovered/Not Resolved]
  - Emotional distress [Not Recovered/Not Resolved]
  - Anxiety [Not Recovered/Not Resolved]
  - Depression [Not Recovered/Not Resolved]
  - Anhedonia [Not Recovered/Not Resolved]
  - Mobility decreased [Not Recovered/Not Resolved]
  - Osteopenia [Not Recovered/Not Resolved]

NARRATIVE: CASE EVENT DATE: 20110901
